FAERS Safety Report 8358287-9 (Version None)
Quarter: 2012Q2

REPORT INFORMATION
  Report Type: 
  Country: None (occurrence: None)
  Receive Date: 20120514
  Receipt Date: 20120509
  Transmission Date: 20120825
  Serious: Yes (Other)
  Sender: FDA-Public Use
  Company Number: CHPA2012US009720

PATIENT
  Age: 83 Year
  Sex: Female
  Weight: 58.957 kg

DRUGS (3)
  1. ANTIDEPRESSANTS [Concomitant]
  2. DRUG THERAPY NOS [Concomitant]
  3. PREVACID 24 HR [Suspect]
     Indication: GASTRIC PH DECREASED
     Dosage: 30 MG, QD
     Route: 048

REACTIONS (14)
  - ANAEMIA [None]
  - OFF LABEL USE [None]
  - DECREASED APPETITE [None]
  - VOMITING [None]
  - COUGH [None]
  - DIARRHOEA [None]
  - DEFAECATION URGENCY [None]
  - OVERDOSE [None]
  - ASTHENIA [None]
  - ARTHRITIS [None]
  - WEIGHT DECREASED [None]
  - NAUSEA [None]
  - DISEASE RECURRENCE [None]
  - INCORRECT DRUG ADMINISTRATION DURATION [None]
